FAERS Safety Report 8766956 (Version 2)
Quarter: 2012Q4

REPORT INFORMATION
  Report Type: 
  Country: US (occurrence: US)
  Receive Date: 20120903
  Receipt Date: 20121011
  Transmission Date: 20130627
  Serious: Yes (Death)
  Sender: FDA-Public Use
  Company Number: US-PFIZER INC-2012214000

PATIENT
  Age: 21 Year
  Sex: Male
  Weight: 79.37 kg

DRUGS (2)
  1. ALPRAZOLAM [Suspect]
     Dosage: UNK
  2. OXYCODONE HYDROCHLORIDE [Interacting]
     Dosage: UNK

REACTIONS (2)
  - Drug interaction [Fatal]
  - Toxicity to various agents [Fatal]
